FAERS Safety Report 14675867 (Version 1)
Quarter: 2018Q1

REPORT INFORMATION
  Report Type: Spontaneous
  Country: IN (occurrence: IN)
  Receive Date: 20180323
  Receipt Date: 20180323
  Transmission Date: 20180509
  Serious: Yes (Death, Hospitalization, Other)
  Sender: FDA-Public Use
  Company Number: IN-DRREDDYS-GPV/IND/18/0096840

PATIENT
  Age: 40 Year
  Sex: Female

DRUGS (2)
  1. ALUMINUM PHOSPHIDE [Suspect]
     Active Substance: ALUMINUM PHOSPHIDE
     Indication: PRODUCT USED FOR UNKNOWN INDICATION
  2. CETIRIZINE [Suspect]
     Active Substance: CETIRIZINE HYDROCHLORIDE
     Indication: PRODUCT USED FOR UNKNOWN INDICATION

REACTIONS (18)
  - Blood pressure decreased [Unknown]
  - Leukocytosis [Unknown]
  - Generalised tonic-clonic seizure [Unknown]
  - Death [Fatal]
  - Metabolic acidosis [Unknown]
  - Respiratory acidosis [Unknown]
  - Electrocardiogram ST segment depression [Unknown]
  - Bradycardia [Unknown]
  - Nausea [Unknown]
  - Sinus tachycardia [Unknown]
  - Depressed level of consciousness [Unknown]
  - Vomiting [Unknown]
  - Abdominal pain upper [Unknown]
  - Heart rate increased [Unknown]
  - Electrocardiogram ST segment elevation [Unknown]
  - Intentional overdose [Fatal]
  - Electrocardiogram T wave amplitude decreased [Unknown]
  - Somnolence [Unknown]
